FAERS Safety Report 10598308 (Version 1)
Quarter: 2014Q4

REPORT INFORMATION
  Report Type: Spontaneous
  Country: IN (occurrence: None)
  Receive Date: 20141119
  Receipt Date: 20141119
  Transmission Date: 20150529
  Serious: Yes (Hospitalization, Other)
  Sender: FDA-Public Use
  Company Number: 2014110018

PATIENT
  Age: 62 Year
  Sex: Male

DRUGS (4)
  1. GLICLAZIDE/ METFORMIN [Concomitant]
  2. METOPROLOL (METOPROLOL) [Concomitant]
     Active Substance: METOPROLOL
  3. ASPIRIN / ATROVASTATIN (ACETYLSALICYCLIC ACID, ATORVASTATIN [Concomitant]
  4. ZOLPIDEM (ZOLPIDEM) [Suspect]
     Active Substance: ZOLPIDEM TARTRATE
     Indication: INSOMNIA

REACTIONS (5)
  - Leukocytosis [None]
  - Vomiting [None]
  - Somnolence [None]
  - Nausea [None]
  - Inappropriate antidiuretic hormone secretion [None]
